FAERS Safety Report 5110229-5 (Version None)
Quarter: 2006Q3

REPORT INFORMATION
  Report Type: 
  Country: None (occurrence: None)
  Receive Date: 20060918
  Receipt Date: 20060904
  Transmission Date: 20061208
  Serious: Yes (Hospitalization)
  Sender: FDA-Public Use
  Company Number: 2006109406

PATIENT
  Age: 50 Year
  Sex: Male
  Weight: 86 kg

DRUGS (6)
  1. MEDROL [Suspect]
     Indication: DRUG USE FOR UNKNOWN INDICATION
     Dosage: 32 MG (16 MG, 2 IN 1 D), ORAL
     Route: 048
  2. TEMOZOLOMIDE (TEMOZOLOMIDE) [Suspect]
     Indication: OLIGODENDROGLIOMA
     Dosage: 140 MG (140 MG, 1 IN 1 D), ORAL
     Route: 048
  3. PROPRANOLOL [Concomitant]
  4. POTASSIUM CHLORIDE [Concomitant]
  5. TRILEPTAL [Concomitant]
  6. OLMESARTAN MEDOXOMIL (OLMESARTAN MEDOXOMIL) [Concomitant]

REACTIONS (3)
  - INFLAMMATION [None]
  - LYMPHOPENIA [None]
  - PNEUMONIA [None]
